FAERS Safety Report 7823002-1 (Version None)
Quarter: 2011Q4

REPORT INFORMATION
  Report Type: 
  Country: None (occurrence: None)
  Receive Date: 20111018
  Receipt Date: 20110706
  Transmission Date: 20120403
  Serious: No
  Sender: FDA-Public Use
  Company Number: US-ASTRAZENECA-2011SE40260

PATIENT
  Age: 49 Year
  Sex: Female
  Weight: 68 kg

DRUGS (4)
  1. XANAX [Concomitant]
  2. ALBUTEROL [Concomitant]
  3. VITAMIN TAB [Concomitant]
  4. SYMBICORT [Suspect]
     Route: 055
     Dates: end: 20110401

REACTIONS (2)
  - LOSS OF EMPLOYMENT [None]
  - TREMOR [None]
